FAERS Safety Report 7629110 (Version 4)
Quarter: 2013Q1

REPORT INFORMATION
  Report Type: Report from Study
  Country: PT (occurrence: PT)
  Receive Date: 20101014
  Receipt Date: 20130304
  Transmission Date: 20140127
  Serious: Yes (Life-Threatening, Hospitalization, Other)
  Sender: FDA-Public Use
  Company Number: PHHO2010PT10767

PATIENT
  Age: 49 Year
  Sex: Female

DRUGS (2)
  1. FTY [Suspect]
     Indication: MULTIPLE SCLEROSIS
     Dosage: 0.5 MG, UNK
     Route: 048
     Dates: start: 20100422, end: 20100713
  2. METHYLPREDNISOLONE [Suspect]
     Indication: MULTIPLE SCLEROSIS RELAPSE
     Dosage: UNK
     Dates: start: 20100711, end: 20100715

REACTIONS (12)
  - Cholangitis acute [Recovering/Resolving]
  - Abdominal pain [Recovering/Resolving]
  - Pyrexia [Recovering/Resolving]
  - Jaundice [Recovering/Resolving]
  - Liver function test abnormal [Recovering/Resolving]
  - Inflammatory marker increased [Recovering/Resolving]
  - Biliary dilatation [Recovering/Resolving]
  - Pneumonia aspiration [Recovering/Resolving]
  - Pneumothorax [Recovering/Resolving]
  - Multiple sclerosis relapse [Recovered/Resolved]
  - Quadriparesis [Recovered/Resolved]
  - Escherichia infection [Recovered/Resolved]
